FAERS Safety Report 10583774 (Version 1)
Quarter: 2014Q4

REPORT INFORMATION
  Report Type: Spontaneous
  Country: US (occurrence: None)
  Receive Date: 20141112
  Receipt Date: 20141112
  Transmission Date: 20150529
  Serious: Yes (Other)
  Sender: FDA-Public Use
  Company Number: UCM201410-000186

PATIENT
  Sex: Female
  Weight: 73 kg

DRUGS (15)
  1. LYRICA [Concomitant]
     Active Substance: PREGABALIN
  2. LORECT (HYDROCODONE BITARTRATE, ACETAMINOPHEN) (HYDROCODONE BITARTRATE, ACETAMINOPHEN) [Concomitant]
  3. KEFLEX (CEPHALEXIN) (CEPHALEXIN) [Concomitant]
  4. MELOXICAM. [Suspect]
     Active Substance: MELOXICAM
     Indication: ARTHRALGIA
     Dosage: 15 MG, 7.5 MG IN MORNING AND EVENING
  5. POTASSIUM (POTASSIUM) (POTASSIUM) [Concomitant]
  6. CELEBREX (CELECOXIB) (CELECOXIB) [Concomitant]
  7. MORPHINE (MORPHINE) (MORPHINE) [Concomitant]
     Active Substance: MORPHINE
  8. TALWIN (PENTAZOCINE, NALOXONE) (PENTAZOCINE, NALOXONE) [Concomitant]
  9. TYLOX (ACETAMINOPHEN, OXYCODONE) (ACETMAINOPHEN, OXYCODONE) [Concomitant]
  10. PREMARIN (ESTROGEN) (ESTROGEN) [Concomitant]
  11. DEMEROL (MEPERIDINE) (MEPERIDINE) [Concomitant]
  12. PRAVASTATIN (PRAVASTATIN) (PRAVASTATIN) [Concomitant]
  13. PREGABALIN (PREGABALIN) (PREGABALIN) [Concomitant]
  14. PENICILLIN (PENICILLIN) (PENICILLIN) [Concomitant]
  15. ESTRADIOL (ESTRADIOL) (ESTRADIOL) [Concomitant]

REACTIONS (2)
  - Skin cancer [None]
  - Gastrooesophageal reflux disease [None]
